FAERS Safety Report 6744695-6 (Version None)
Quarter: 2010Q2

REPORT INFORMATION
  Report Type: 
  Country: None (occurrence: None)
  Receive Date: 20100526
  Receipt Date: 20100526
  Transmission Date: 20101027
  Serious: Yes (Life-Threatening, Hospitalization)
  Sender: FDA-Public Use
  Company Number: None

PATIENT
  Sex: Female
  Weight: 106.5953 kg

DRUGS (2)
  1. HYDROCODONE BITARTRATE [Suspect]
     Indication: BACK PAIN
     Dosage: 5 MG EVERY 6 HOURS PO
     Route: 048
     Dates: start: 20051001, end: 20100224
  2. TUMERIC 1160 MG CURCUMIN, NSI 5 MG PPERINE [Suspect]
     Indication: PAIN
     Dosage: 1160/5 MG 2 TIMES A DAY PO
     Route: 048
     Dates: start: 20100107, end: 20100224

REACTIONS (12)
  - ANXIETY [None]
  - APHAGIA [None]
  - BLOOD POTASSIUM DECREASED [None]
  - DIARRHOEA [None]
  - DRUG INTERACTION [None]
  - DYSPNOEA [None]
  - HEADACHE [None]
  - HEPATIC ENZYME INCREASED [None]
  - INSOMNIA [None]
  - PAIN [None]
  - PALPITATIONS [None]
  - SWELLING [None]
